FAERS Safety Report 5226692-5 (Version None)
Quarter: 2007Q1

REPORT INFORMATION
  Report Type: 
  Country: None (occurrence: None)
  Receive Date: 20070129
  Receipt Date: 20061130
  Transmission Date: 20070707
  Serious: Yes (Death)
  Sender: FDA-Public Use
  Company Number: T200601639

PATIENT
  Age: 26 Year
  Sex: 0

DRUGS (2)
  1. METHADOSE [Suspect]
     Dosage: ORAL
     Route: 048
  2. MARIJUANA (CANNABIS SATIVA) [Suspect]
     Dosage: INSUFFLATION
     Route: 055

REACTIONS (1)
  - COMPLETED SUICIDE [None]
